FAERS Safety Report 26049489 (Version 2)
Quarter: 2025Q4

REPORT INFORMATION
  Report Type: Spontaneous
  Country: EU (occurrence: EU)
  Receive Date: 20251115
  Receipt Date: 20251217
  Transmission Date: 20260117
  Serious: Yes (Disabling)
  Sender: CELLTRION
  Company Number: EU-SANDOZ-SDZ2025PL081415

PATIENT

DRUGS (2)
  1. ADALIMUMAB [Suspect]
     Active Substance: ADALIMUMAB
     Indication: Crohn^s disease
     Dosage: 80 MG
     Route: 058
     Dates: start: 20250729, end: 20250828
  2. ADALIMUMAB [Suspect]
     Active Substance: ADALIMUMAB

REACTIONS (1)
  - Visual impairment [Not Recovered/Not Resolved]

NARRATIVE: CASE EVENT DATE: 20250823
